FAERS Safety Report 14417285 (Version 2)
Quarter: 2018Q1

REPORT INFORMATION
  Report Type: Spontaneous
  Country: AU (occurrence: AU)
  Receive Date: 20180122
  Receipt Date: 20180216
  Transmission Date: 20180509
  Serious: Yes (Hospitalization, Other)
  Sender: FDA-Public Use
  Company Number: AU-FERRINGPH-2017FE06354

PATIENT

DRUGS (2)
  1. FIRMAGON [Suspect]
     Active Substance: DEGARELIX ACETATE
     Indication: PROSTATE CANCER
     Dosage: 80 MG, MONTHLY
     Route: 058
     Dates: end: 20171027
  2. FIRMAGON [Suspect]
     Active Substance: DEGARELIX ACETATE
     Dosage: 240 MG, ONCE/SINGLE
     Route: 058
     Dates: start: 201708

REACTIONS (13)
  - Hypoaesthesia oral [Unknown]
  - Nausea [Unknown]
  - Vomiting [Unknown]
  - Asthenia [Recovering/Resolving]
  - Myalgia [Recovering/Resolving]
  - Feeding disorder [Recovering/Resolving]
  - Pyrexia [Recovered/Resolved]
  - Lethargy [Unknown]
  - Anaemia [Recovering/Resolving]
  - Hypoaesthesia [Unknown]
  - Arthralgia [Unknown]
  - Weight decreased [Recovering/Resolving]
  - Lip swelling [Unknown]

NARRATIVE: CASE EVENT DATE: 20171220
